FAERS Safety Report 25659919 (Version 3)
Quarter: 2025Q3

REPORT INFORMATION
  Report Type: Spontaneous
  Country: US (occurrence: US)
  Receive Date: 20250808
  Receipt Date: 20250901
  Transmission Date: 20251021
  Serious: No
  Sender: SANOFI AVENTIS
  Company Number: US-SA-2025SA232881

PATIENT
  Age: 60 Year
  Sex: Female

DRUGS (3)
  1. TZIELD [Suspect]
     Active Substance: TEPLIZUMAB-MZWV
     Dates: start: 20250804, end: 202508
  2. TZIELD [Suspect]
     Active Substance: TEPLIZUMAB-MZWV
     Dates: start: 202508, end: 202508
  3. TZIELD [Suspect]
     Active Substance: TEPLIZUMAB-MZWV
     Dates: start: 202508

REACTIONS (6)
  - Vein rupture [Unknown]
  - Infusion site irritation [Unknown]
  - Infusion site pruritus [Unknown]
  - Nausea [Recovering/Resolving]
  - Headache [Recovering/Resolving]
  - Rash [Unknown]

NARRATIVE: CASE EVENT DATE: 20250801
